FAERS Safety Report 6132801-6 (Version None)
Quarter: 2009Q1

REPORT INFORMATION
  Report Type: 
  Country: None (occurrence: None)
  Receive Date: 20090326
  Receipt Date: 20090320
  Transmission Date: 20090719
  Serious: Yes (Disabling)
  Sender: FDA-Public Use
  Company Number: BR-BAYER-200913896LA

PATIENT
  Age: 59 Year
  Sex: Female

DRUGS (2)
  1. BETAFERON [Suspect]
     Indication: SECONDARY PROGRESSIVE MULTIPLE SCLEROSIS
     Route: 058
     Dates: start: 20090319
  2. UNKNOWN DRUG [Concomitant]
     Indication: DEPRESSION
     Route: 048
     Dates: start: 20090101

REACTIONS (5)
  - ASTHENIA [None]
  - DYSSTASIA [None]
  - HEAD DISCOMFORT [None]
  - HYPERHIDROSIS [None]
  - SENSATION OF HEAVINESS [None]
